FAERS Safety Report 9517197 (Version 1)
Quarter: 2013Q1

REPORT INFORMATION
  Report Type: Spontaneous
  Country: US (occurrence: None)
  Receive Date: 20130305
  Receipt Date: 20130305
  Transmission Date: 20140127
  Serious: Yes (Hospitalization)
  Sender: FDA-Public Use
  Company Number: 163-21880-12113537

PATIENT
  Age: 72 Year
  Sex: 0
  Weight: 103.6 kg

DRUGS (8)
  1. REVLIMID [Suspect]
     Indication: PLASMA CELL MYELOMA
     Route: 048
     Dates: start: 201204
  2. SIMVASTATIN [Concomitant]
  3. GABAPENTIN [Concomitant]
  4. CYMBALTA [Concomitant]
  5. PRILOSEC [Concomitant]
  6. DEXAMETHASONE [Concomitant]
  7. DIAZEPAM [Concomitant]
  8. ALBUTEROL MDI (SALBUTAMOL) [Concomitant]

REACTIONS (1)
  - Pneumonia [None]
